FAERS Safety Report 7099611-7 (Version None)
Quarter: 2010Q4

REPORT INFORMATION
  Report Type: 
  Country: None (occurrence: None)
  Receive Date: 20101105
  Receipt Date: 20101022
  Transmission Date: 20110411
  Serious: Yes (Other)
  Sender: FDA-Public Use
  Company Number: 1000016983

PATIENT
  Age: 32 Year
  Sex: Female

DRUGS (2)
  1. CITALOPRAM HYDROBROMIDE [Suspect]
     Dosage: 40 MG (40 MG, 1 IN 1 D), ORAL
     Route: 048
  2. DEPO-PROVERA (MEDROXYPROGESTERONE ACETATE) (MEDROXYPROGESTERONE ACETAT [Concomitant]

REACTIONS (3)
  - BALLISMUS [None]
  - CHOREA [None]
  - DYSTONIA [None]
